FAERS Safety Report 6601235-X (Version None)
Quarter: 2010Q1

REPORT INFORMATION
  Report Type: 
  Country: None (occurrence: None)
  Receive Date: 20100225
  Receipt Date: 20100219
  Transmission Date: 20100710
  Serious: Yes (Hospitalization)
  Sender: FDA-Public Use
  Company Number: CN-BRISTOL-MYERS SQUIBB COMPANY-14986228

PATIENT
  Sex: Female

DRUGS (1)
  1. NYSTATIN [Suspect]
     Dates: start: 20100201, end: 20100219

REACTIONS (1)
  - HYPERSENSITIVITY [None]
